FAERS Safety Report 4909928-7 (Version None)
Quarter: 2006Q1

REPORT INFORMATION
  Report Type: 
  Country: None (occurrence: None)
  Receive Date: 20060208
  Receipt Date: 20060201
  Transmission Date: 20060701
  Serious: Yes (Death)
  Sender: FDA-Public Use
  Company Number: 2006US000201

PATIENT
  Age: 15 Year
  Sex: Male

DRUGS (1)
  1. PROGRAF [Suspect]
     Indication: PROPHYLAXIS AGAINST TRANSPLANT REJECTION
     Dosage: 0.05 MG/KG, UID/QD, IV NOS
     Route: 042

REACTIONS (14)
  - ABDOMINAL PAIN [None]
  - BRAIN HERNIATION [None]
  - BRAIN OEDEMA [None]
  - CAPILLARY DISORDER [None]
  - DIARRHOEA HAEMORRHAGIC [None]
  - DIFFUSE VASCULITIS [None]
  - EPISTAXIS [None]
  - GASTRITIS [None]
  - HAEMORRHAGE INTRACRANIAL [None]
  - HYPOTENSION [None]
  - OESOPHAGITIS [None]
  - RESPIRATORY DISTRESS [None]
  - SEPTIC SHOCK [None]
  - THROMBOSIS [None]
